FAERS Safety Report 18399515 (Version 2)
Quarter: 2021Q1

REPORT INFORMATION
  Report Type: Spontaneous
  Country: US (occurrence: US)
  Receive Date: 20201019
  Receipt Date: 20210112
  Transmission Date: 20210419
  Serious: No
  Sender: FDA-Public Use
  Company Number: US-BAYER-2020-218645

PATIENT
  Sex: Female

DRUGS (8)
  1. ALEVE [Suspect]
     Active Substance: NAPROXEN SODIUM
  2. TRAMADOL. [Suspect]
     Active Substance: TRAMADOL
  3. ACETAMINOPHEN. [Concomitant]
     Active Substance: ACETAMINOPHEN
  4. VICODIN [Concomitant]
     Active Substance: ACETAMINOPHEN\HYDROCODONE BITARTRATE
  5. TYLENOL [Concomitant]
     Active Substance: ACETAMINOPHEN
  6. OXYCODONE [Suspect]
     Active Substance: OXYCODONE
  7. BUPRENORPHINE. [Suspect]
     Active Substance: BUPRENORPHINE
  8. MOTRIN [NAPROXEN] [Concomitant]
     Active Substance: NAPROXEN

REACTIONS (6)
  - Depression [Unknown]
  - Asthma [Unknown]
  - Abdominal pain upper [Unknown]
  - Anxiety [Unknown]
  - Abdominal pain lower [Unknown]
  - Fibromyalgia [Unknown]
